FAERS Safety Report 7787678-X (Version None)
Quarter: 2011Q3

REPORT INFORMATION
  Report Type: 
  Country: None (occurrence: None)
  Receive Date: 20110929
  Receipt Date: 20110920
  Transmission Date: 20111222
  Serious: Yes (Other)
  Sender: FDA-Public Use
  Company Number: US-ASTRAZENECA-2011SE56753

PATIENT

DRUGS (4)
  1. CRESTOR [Suspect]
     Route: 048
  2. ZETIA [Concomitant]
     Route: 048
  3. CARAFATE [Concomitant]
     Dosage: 1 TABLET BEFORE MEALS AND BEDTIME
     Route: 048
  4. NEXIUM [Suspect]
     Route: 048

REACTIONS (1)
  - GASTROINTESTINAL HAEMORRHAGE [None]
